FAERS Safety Report 24126337 (Version 5)
Quarter: 2024Q3

REPORT INFORMATION
  Report Type: Report from Study
  Country: MX (occurrence: MX)
  Receive Date: 20240723
  Receipt Date: 20240917
  Transmission Date: 20241017
  Serious: Yes (Other)
  Sender: NOVARTIS
  Company Number: MX-002147023-NVSC2024MX131934

PATIENT
  Sex: Female
  Weight: 86 kg

DRUGS (6)
  1. TASIGNA [Suspect]
     Active Substance: NILOTINIB
     Indication: Chronic myeloid leukaemia
     Dosage: 2 OF 200 MG (400 MG, QD)
     Route: 048
     Dates: start: 2022
  2. TASIGNA [Suspect]
     Active Substance: NILOTINIB
     Dosage: 2 DOSAGE FORM, BID
     Route: 048
     Dates: end: 20240715
  3. TASIGNA [Suspect]
     Active Substance: NILOTINIB
     Dosage: 400 MG, QD (2X200 MG)
     Route: 048
     Dates: end: 20240802
  4. TASIGNA [Suspect]
     Active Substance: NILOTINIB
     Dosage: 1 DOSAGE FORM, Q12H
     Route: 048
  5. FLUOXETINE [Concomitant]
     Active Substance: FLUOXETINE HYDROCHLORIDE
     Indication: Anxiety
     Dosage: 1 OF 20 MG, QD (EVERY 24 HOURS)
     Route: 048
     Dates: start: 20240627, end: 20240802
  6. FLUOXETINE [Concomitant]
     Active Substance: FLUOXETINE HYDROCHLORIDE
     Indication: Depression

REACTIONS (14)
  - Haematemesis [Recovered/Resolved]
  - Platelet count increased [Unknown]
  - Stress [Not Recovered/Not Resolved]
  - Intrusive thoughts [Unknown]
  - Irritability [Recovering/Resolving]
  - Depressed mood [Unknown]
  - Mood altered [Recovering/Resolving]
  - Emotional distress [Unknown]
  - Headache [Recovered/Resolved]
  - Feeling of despair [Recovering/Resolving]
  - Insomnia [Recovered/Resolved]
  - Off label use [Not Recovered/Not Resolved]
  - Therapeutic response decreased [Unknown]
  - White blood cell count increased [Unknown]

NARRATIVE: CASE EVENT DATE: 20220101
